FAERS Safety Report 7469294-2 (Version None)
Quarter: 2011Q2

REPORT INFORMATION
  Report Type: 
  Country: None (occurrence: None)
  Receive Date: 20110510
  Receipt Date: 20110506
  Transmission Date: 20111010
  Serious: Yes (Other)
  Sender: FDA-Public Use
  Company Number: US-PFIZER INC-2011098531

PATIENT
  Sex: Female
  Weight: 136 kg

DRUGS (2)
  1. XANAX [Suspect]
     Indication: ANXIETY
     Dosage: 0.5 MG, 2X/DAY
     Route: 048
     Dates: start: 20110503, end: 20110505
  2. XANAX [Suspect]
     Indication: DEPRESSION

REACTIONS (1)
  - MYALGIA [None]
